FAERS Safety Report 21706057 (Version 2)
Quarter: 2022Q4

REPORT INFORMATION
  Report Type: Spontaneous
  Country: IT (occurrence: IT)
  Receive Date: 20221209
  Receipt Date: 20221220
  Transmission Date: 20230112
  Serious: Yes (Other)
  Sender: FDA-Public Use
  Company Number: IT-JNJFOC-20220955290

PATIENT
  Age: 21 Year
  Sex: Male
  Weight: 55 kg

DRUGS (17)
  1. AZITHROMYCIN [Suspect]
     Active Substance: AZITHROMYCIN
     Indication: Tuberculosis
     Dosage: UNK
     Route: 065
  2. ETHAMBUTOL [Suspect]
     Active Substance: ETHAMBUTOL HYDROCHLORIDE
     Indication: Tuberculosis
     Dosage: UNK
     Route: 065
  3. MEROPENEM [Suspect]
     Active Substance: MEROPENEM
     Indication: Tuberculosis
     Dosage: 6 GRAM, QD, 2 G, 3X/DAY
     Route: 065
  4. STREPTOMYCIN [Suspect]
     Active Substance: STREPTOMYCIN SULFATE
     Indication: Tuberculosis
     Dosage: UNK
     Route: 065
  5. PYRAZINAMIDE [Suspect]
     Active Substance: PYRAZINAMIDE
     Indication: Tuberculosis
     Dosage: UNK
     Route: 065
  6. ISONIAZID [Suspect]
     Active Substance: ISONIAZID
     Indication: Tuberculosis
     Dosage: UNK
     Route: 065
  7. DOXYCYCLINE HYCLATE [Suspect]
     Active Substance: DOXYCYCLINE HYCLATE
     Indication: Tuberculosis
     Dosage: UNK
     Route: 065
  8. RIFAMPIN [Suspect]
     Active Substance: RIFAMPIN
     Indication: Tuberculosis
     Dosage: UNK
     Route: 065
  9. LINEZOLID [Concomitant]
     Active Substance: LINEZOLID
     Indication: Bone tuberculosis
     Dosage: 600 MILLIGRAM, QD, 600 MG, DAILY
     Route: 048
  10. LINEZOLID [Concomitant]
     Active Substance: LINEZOLID
     Dosage: 1200 MILLIGRAM, QD, 600 MG, 2X/DAY
     Route: 042
  11. RIFABUTIN [Concomitant]
     Active Substance: RIFABUTIN
     Indication: Bone tuberculosis
     Dosage: 450 MILLIGRAM, QD, 450 MG, DAILY
     Route: 065
  12. LEVOFLOXACIN [Concomitant]
     Active Substance: LEVOFLOXACIN
     Dosage: 1000 MILLIGRAM, QD, 500 MG, 2X/DAY
     Route: 065
  13. AMOXICILLIN\CLAVULANATE POTASSIUM [Concomitant]
     Active Substance: AMOXICILLIN\CLAVULANATE POTASSIUM
     Dosage: 6.6 GRAM, QD, 2.2 G, 3X/DAY
     Route: 065
  14. AMIKACIN [Concomitant]
     Active Substance: AMIKACIN
     Indication: Bone tuberculosis
     Dosage: 750 MILLIGRAM, QD, 750 MG, DAILY
     Route: 065
  15. BEDAQUILINE [Concomitant]
     Active Substance: BEDAQUILINE
     Indication: Bone tuberculosis
     Dosage: 200 MILLIGRAM, 0.33  WEEK
     Route: 048
  16. BEDAQUILINE [Concomitant]
     Active Substance: BEDAQUILINE
     Dosage: 400 MILLIGRAM, QD
     Route: 048
  17. MOXIFLOXACIN [Concomitant]
     Active Substance: MOXIFLOXACIN
     Dosage: 400 MILLIGRAM, QD, 400 MG, DAILY
     Route: 065

REACTIONS (3)
  - Electrocardiogram T wave inversion [Unknown]
  - Drug resistance [Unknown]
  - Off label use [Unknown]
